FAERS Safety Report 17129069 (Version 1)
Quarter: 2019Q4

REPORT INFORMATION
  Report Type: Spontaneous
  Country: ES (occurrence: ES)
  Receive Date: 20191209
  Receipt Date: 20191209
  Transmission Date: 20200122
  Serious: Yes (Other)
  Sender: FDA-Public Use
  Company Number: ES-TEVA-2019-ES-1149814

PATIENT
  Age: 61 Year
  Sex: Female

DRUGS (1)
  1. CARBOPLATIN. [Suspect]
     Active Substance: CARBOPLATIN
     Indication: INVASIVE DUCTAL BREAST CARCINOMA
     Dosage: 4 CYCLES AT STANDARD DOSES (CARBOPLATIN AREA UNDER THE CURVE OF 6 EVERY 21 DAYS)
     Route: 042

REACTIONS (4)
  - Anaemia [Unknown]
  - Eye haemorrhage [Recovered/Resolved with Sequelae]
  - Thrombocytopenia [Unknown]
  - Papilloedema [Recovered/Resolved with Sequelae]
